FAERS Safety Report 16446689 (Version 1)
Quarter: 2019Q2

REPORT INFORMATION
  Report Type: Spontaneous
  Country: DE (occurrence: DE)
  Receive Date: 20190618
  Receipt Date: 20190618
  Transmission Date: 20190711
  Serious: Yes (Other)
  Sender: FDA-Public Use
  Company Number: DE-BAUSCH-BL-2019-016715

PATIENT
  Sex: Male

DRUGS (23)
  1. METHOTREXATE. [Suspect]
     Active Substance: METHOTREXATE
     Dosage: IN 250 ML OF 0.9 PERCENT NACL OVER 0.5 HOURS
     Route: 064
  2. METHOTREXATE. [Suspect]
     Active Substance: METHOTREXATE
     Dosage: IN 1000 ML OF 0.9 PERCENT NACL OVER 23.5 H (START LEUCOVORIN-RESCUE 42 H AFTER INFUSION)
     Route: 064
  3. DAUNORUBICIN [Suspect]
     Active Substance: DAUNORUBICIN
     Indication: PRODUCT USED FOR UNKNOWN INDICATION
     Dosage: IN 250 ML OF 0.9 PERCENT NACL OVER 15 MIN
     Route: 064
  4. RITUXIMAB. [Suspect]
     Active Substance: RITUXIMAB
     Indication: PRODUCT USED FOR UNKNOWN INDICATION
     Dosage: ON DAY 6, IN 500 ML OF 0.9 PERCENT NACL OVER 2 H
     Route: 064
  5. DEXAMETHASONE. [Suspect]
     Active Substance: DEXAMETHASONE
     Dosage: ON DAY 6, 7 AND FROM DAY 13-16
     Route: 064
  6. ETOPOSIDE. [Suspect]
     Active Substance: ETOPOSIDE
     Indication: PRODUCT USED FOR UNKNOWN INDICATION
     Dosage: 1000 ML OF 0.9 PERCENT NACL VIA IV ROUTE OVER 1 H
     Route: 064
  7. VINCRISTINE [Suspect]
     Active Substance: VINCRISTINE
     Indication: PRODUCT USED FOR UNKNOWN INDICATION
     Dosage: 50ML OF 0.9 PERCENT NACL VIA IV ROUTE OVER 10 MINUTES
     Route: 064
  8. LEUCOVORIN. [Suspect]
     Active Substance: LEUCOVORIN
     Route: 064
  9. RITUXIMAB. [Suspect]
     Active Substance: RITUXIMAB
     Dosage: IN 500 ML OF 0.9 PERCENT NACL OVER 2 H
     Route: 064
  10. RITUXIMAB. [Suspect]
     Active Substance: RITUXIMAB
     Dosage: ON DAY 6, IN 500 ML OF 0.9 PERCENT NACL OVER 2 H
     Route: 064
  11. DEXAMETHASONE. [Suspect]
     Active Substance: DEXAMETHASONE
     Indication: PRODUCT USED FOR UNKNOWN INDICATION
     Dosage: ON DAYS 2-5, PREPHASE
     Route: 064
  12. CYCLOPHOSPHAMIDE. [Suspect]
     Active Substance: CYCLOPHOSPHAMIDE
     Indication: PRODUCT USED FOR UNKNOWN INDICATION
     Dosage: ON DAYS 3-5, IN 250 ML OF 0.9 PERCENT OF SODIUM CHLORIDE (NACL)
     Route: 064
  13. VINDESINE [Suspect]
     Active Substance: VINDESINE
     Indication: PRODUCT USED FOR UNKNOWN INDICATION
     Dosage: 50 ML OF 0.9 PERCENT NACL
     Route: 064
  14. DEXAMETHASONE. [Suspect]
     Active Substance: DEXAMETHASONE
     Dosage: ON DAY 61
     Route: 064
  15. MERCAPTOPURINE. [Suspect]
     Active Substance: MERCAPTOPURINE
     Indication: PRODUCT USED FOR UNKNOWN INDICATION
     Dosage: DAY 31-44
     Route: 064
  16. CYCLOPHOSPHAMIDE. [Suspect]
     Active Substance: CYCLOPHOSPHAMIDE
     Dosage: IN 250 ML OF 0.9 PERCENT OF SODIUM CHLORIDE (NACL) 1 H
     Route: 064
  17. MESNA. [Suspect]
     Active Substance: MESNA
     Indication: PRODUCT USED FOR UNKNOWN INDICATION
     Dosage: ON DAY 24, 44
     Route: 064
  18. RITUXIMAB. [Suspect]
     Active Substance: RITUXIMAB
     Dosage: ON DAY 6, IN 500 ML OF 0.9 PERCENT NACL FROM DAY 24
     Route: 064
  19. METHOTREXATE. [Suspect]
     Active Substance: METHOTREXATE
     Indication: PRODUCT USED FOR UNKNOWN INDICATION
     Dosage: DAY 28, 32, 39,  IN 0.9 PERCENT NACL 18 MG ABS
     Route: 064
  20. CYTARABINE. [Suspect]
     Active Substance: CYTARABINE
     Indication: PRODUCT USED FOR UNKNOWN INDICATION
     Dosage: IN 250 ML OF 0.9 PERCENT NACL 1 H
     Route: 064
  21. LEUCOVORIN. [Suspect]
     Active Substance: LEUCOVORIN
     Indication: PRODUCT USED FOR UNKNOWN INDICATION
     Dosage: 42 H AFTER INFUSION
     Route: 064
  22. CYTARABINE. [Suspect]
     Active Substance: CYTARABINE
     Dosage: IN 500 ML OF 0.9 PERCENT NACL
     Route: 064
  23. PEGASPARGASE [Suspect]
     Active Substance: PEGASPARGASE
     Indication: PRODUCT USED FOR UNKNOWN INDICATION
     Dosage: DAY 20 (MAXIMUM OF ONE AMPOULE) IN 100ML OF 0.9 PERCENT NACL ADMINISTERED OVER 2H INDUCTION I PHASE
     Route: 064

REACTIONS (1)
  - Foetal growth restriction [Recovered/Resolved]
